FAERS Safety Report 13893663 (Version 2)
Quarter: 2017Q3

REPORT INFORMATION
  Report Type: Report from Study
  Country: IL (occurrence: IL)
  Receive Date: 20170822
  Receipt Date: 20170907
  Transmission Date: 20171127
  Serious: No
  Sender: FDA-Public Use
  Company Number: IL-EISAI MEDICAL RESEARCH-EC-2017-029122

PATIENT
  Age: 67 Year
  Sex: Female

DRUGS (5)
  1. LENVATINIB [Suspect]
     Active Substance: LENVATINIB
     Indication: RENAL CELL CARCINOMA
     Route: 048
     Dates: start: 20170503, end: 2017
  2. ELTROXIN [Concomitant]
     Active Substance: LEVOTHYROXINE
  3. AFINITOR [Concomitant]
     Active Substance: EVEROLIMUS
  4. LETROZOLE. [Concomitant]
     Active Substance: LETROZOLE
  5. ENALADEX [Concomitant]
     Active Substance: ENALAPRIL MALEATE

REACTIONS (3)
  - Fatigue [Unknown]
  - Nausea [Unknown]
  - Asthenia [Unknown]

NARRATIVE: CASE EVENT DATE: 2017
